FAERS Safety Report 4316137-1 (Version None)
Quarter: 2004Q1

REPORT INFORMATION
  Report Type: 
  Country: None (occurrence: None)
  Receive Date: 20040312
  Receipt Date: 20040302
  Transmission Date: 20041129
  Serious: Yes (Death, Hospitalization)
  Sender: FDA-Public Use
  Company Number: US-BRISTOL-MYERS SQUIBB COMPANY-12526810

PATIENT
  Age: 48 Year
  Sex: Male

DRUGS (9)
  1. METFORMIN HCL [Suspect]
     Indication: DIABETES MELLITUS NON-INSULIN-DEPENDENT
     Route: 048
  2. GLIPIZIDE [Suspect]
     Indication: DIABETES MELLITUS
  3. PIOGLITAZONE HCL [Suspect]
     Indication: DIABETES MELLITUS
  4. ALCOHOL [Suspect]
  5. LISINOPRIL [Concomitant]
     Indication: HYPERTENSION
  6. ATENOLOL [Concomitant]
     Indication: HYPERTENSION
  7. SIMVASTATIN [Concomitant]
     Indication: HYPERLIPIDAEMIA
  8. CLOPIDOGREL BISULFATE [Concomitant]
     Indication: MYOCARDIAL INFARCTION
  9. FLUOXETINE [Concomitant]
     Indication: DEPRESSION

REACTIONS (12)
  - ALCOHOL USE [None]
  - BLOOD GLUCOSE INCREASED [None]
  - BRONCHOPNEUMONIA [None]
  - COMA [None]
  - COMPLETED SUICIDE [None]
  - DEPRESSION [None]
  - DIALYSIS [None]
  - EXCORIATION [None]
  - INTENTIONAL OVERDOSE [None]
  - JOINT INJURY [None]
  - METABOLIC ACIDOSIS [None]
  - WOUND [None]
